FAERS Safety Report 8935065 (Version 3)
Quarter: 2012Q4

REPORT INFORMATION
  Report Type: 
  Country: JP (occurrence: JP)
  Receive Date: 20121129
  Receipt Date: 20121224
  Transmission Date: 20130627
  Serious: Yes (Death, Other)
  Sender: FDA-Public Use
  Company Number: JP-OTSUKA-JP-2012-16882

PATIENT
  Age: 83 Year
  Sex: Female

DRUGS (3)
  1. SAMSCA [Suspect]
     Dosage: 7.5 Mg milligram(s), daily dose
     Route: 048
     Dates: start: 20120121, end: 20120121
  2. SAMSCA [Suspect]
     Dosage: 7.5 Mg milligram(s), daily dose
     Route: 048
     Dates: start: 20120123, end: 20120123
  3. DIURETICS [Concomitant]
     Route: 065

REACTIONS (3)
  - Altered state of consciousness [Fatal]
  - Brain stem haemorrhage [Fatal]
  - Hypernatraemia [Fatal]
